FAERS Safety Report 9439882 (Version 1)
Quarter: 2013Q3

REPORT INFORMATION
  Report Type: Spontaneous
  Country: GB (occurrence: GB)
  Receive Date: 20130805
  Receipt Date: 20130805
  Transmission Date: 20140515
  Serious: Yes (Life-Threatening, Hospitalization, Other)
  Sender: FDA-Public Use
  Company Number: GB-JNJFOC-20130716601

PATIENT
  Age: 35 Year
  Sex: Female
  Weight: 88.1 kg

DRUGS (1)
  1. CILEST [Suspect]
     Indication: CONTRACEPTION
     Route: 048
     Dates: start: 20130424, end: 201305

REACTIONS (3)
  - Superior sagittal sinus thrombosis [Unknown]
  - Headache [Unknown]
  - Muscular weakness [Unknown]
